FAERS Safety Report 12292972 (Version 1)
Quarter: 2016Q2

REPORT INFORMATION
  Report Type: Report from Study
  Country: US (occurrence: US)
  Receive Date: 20160421
  Receipt Date: 20160421
  Transmission Date: 20160815
  Serious: No
  Sender: FDA-Public Use
  Company Number: US-AMGEN-USASL2016045928

PATIENT
  Age: 61 Year
  Sex: Female

DRUGS (2)
  1. REPATHA [Suspect]
     Active Substance: EVOLOCUMAB
     Indication: PRODUCT USED FOR UNKNOWN INDICATION
     Dosage: 140 MG, Q2WK
     Route: 065
  2. BEE POLLEN [Suspect]
     Active Substance: BEE POLLEN
     Indication: PRODUCT USED FOR UNKNOWN INDICATION
     Route: 065

REACTIONS (10)
  - Heart rate increased [Recovered/Resolved]
  - Fatigue [Recovering/Resolving]
  - Pain [Unknown]
  - Sneezing [Unknown]
  - Cough [Unknown]
  - Insomnia [Unknown]
  - Arthralgia [Unknown]
  - Road traffic accident [Unknown]
  - Limb discomfort [Unknown]
  - Musculoskeletal discomfort [Unknown]
